FAERS Safety Report 21755972 (Version 1)
Quarter: 2022Q4

REPORT INFORMATION
  Report Type: 
  Country: None (occurrence: None)
  Receive Date: 20221220
  Receipt Date: 20221220
  Transmission Date: 20230113
  Serious: No
  Sender: FDA-Public Use
  Company Number: None

PATIENT

DRUGS (1)
  1. LACTULOSE [Suspect]
     Active Substance: LACTULOSE

REACTIONS (2)
  - Abdominal pain upper [Unknown]
  - Nausea [Unknown]
